FAERS Safety Report 8871362 (Version 2)
Quarter: 2012Q4

REPORT INFORMATION
  Report Type: 
  Country: DE (occurrence: DE)
  Receive Date: 20121023
  Receipt Date: 20121207
  Transmission Date: 20130627
  Serious: Yes (Hospitalization, Other)
  Sender: FDA-Public Use
  Company Number: DE-ELI_LILLY_AND_COMPANY-DE201210003362

PATIENT
  Sex: Female

DRUGS (5)
  1. BYDUREON [Suspect]
     Indication: DIABETES MELLITUS
     Dosage: 2 mg, weekly (1/W)
     Route: 058
     Dates: start: 201109
  2. LOSARTAN [Concomitant]
  3. AMLODIPIN                          /00972401/ [Concomitant]
  4. SIMVASTATIN [Concomitant]
  5. BETA BLOCKING AGENTS [Concomitant]

REACTIONS (6)
  - Ovarian cancer [Unknown]
  - Metastases to liver [Unknown]
  - Metastases to peritoneum [Unknown]
  - Weight decreased [Unknown]
  - Waist circumference increased [Unknown]
  - General physical condition abnormal [Unknown]
